FAERS Safety Report 6336789-4 (Version None)
Quarter: 2009Q3

REPORT INFORMATION
  Report Type: 
  Country: None (occurrence: None)
  Receive Date: 20090831
  Receipt Date: 20090831
  Transmission Date: 20100115
  Serious: Yes (Hospitalization)
  Sender: FDA-Public Use
  Company Number: None

PATIENT
  Sex: Male
  Weight: 79 kg

DRUGS (14)
  1. TAXOTERE [Suspect]
     Indication: PROSTATE CANCER
     Dosage: 147 MG Q3WEEKS IV
     Route: 042
     Dates: start: 20090423, end: 20090806
  2. PREDNISONE [Suspect]
     Indication: CHEMOTHERAPY
     Dosage: 5 MG BID PO
     Route: 048
     Dates: start: 20090422, end: 20090820
  3. ZOLADEX [Concomitant]
  4. CALCIUM [Concomitant]
  5. ZOMETA [Concomitant]
  6. IBUPROFEN [Concomitant]
  7. LEVOTHYROXINE [Concomitant]
  8. DOCUSATE [Concomitant]
  9. OMEPRAZOLE [Concomitant]
  10. AMIODARONE [Concomitant]
  11. SENOKOT DAILY [Concomitant]
  12. COMPAZINE [Concomitant]
  13. ASPIRIN [Concomitant]
  14. SIMVASTATIN [Concomitant]

REACTIONS (5)
  - DEHYDRATION [None]
  - HYPOTENSION [None]
  - NAUSEA [None]
  - PNEUMONIA [None]
  - VOMITING [None]
